FAERS Safety Report 9949457 (Version 1)
Quarter: 2014Q1

REPORT INFORMATION
  Report Type: Report from Study
  Country: US (occurrence: US)
  Receive Date: 20140304
  Receipt Date: 20140304
  Transmission Date: 20141002
  Serious: No
  Sender: FDA-Public Use
  Company Number: US-ABBVIE-13P-163-1067110-00

PATIENT
  Age: 40 Year
  Sex: Female
  Weight: 127.12 kg

DRUGS (4)
  1. HUMIRA [Suspect]
     Indication: PSORIASIS
     Dosage: ONE-TIME DOSE
     Route: 058
     Dates: start: 201301, end: 201301
  2. HUMIRA [Suspect]
     Route: 058
     Dates: start: 201302
  3. CLONAZEPAM [Concomitant]
     Indication: ANXIETY
     Dates: start: 2010
  4. PROZAC [Concomitant]
     Indication: DEPRESSION
     Dates: start: 201211

REACTIONS (3)
  - Pain in extremity [Not Recovered/Not Resolved]
  - Nasopharyngitis [Recovered/Resolved]
  - Alopecia [Not Recovered/Not Resolved]
